FAERS Safety Report 9951589 (Version 2)
Quarter: 2014Q1

REPORT INFORMATION
  Report Type: Spontaneous
  Country: CA (occurrence: CA)
  Receive Date: 20140304
  Receipt Date: 20140321
  Transmission Date: 20141002
  Serious: Yes (Hospitalization, Other)
  Sender: FDA-Public Use
  Company Number: CA-AMGEN-CANSP2014013961

PATIENT
  Age: 76 Year
  Sex: Female

DRUGS (12)
  1. PROLIA [Suspect]
     Indication: OSTEOPOROSIS
     Dosage: UNK
     Route: 065
  2. BISOPROLOL [Concomitant]
     Dosage: UNK
     Route: 065
  3. AMLODIPINE [Concomitant]
     Dosage: UNK
     Route: 065
  4. PRADAXA [Concomitant]
     Dosage: UNK
     Route: 065
  5. VITAMIN D                          /00107901/ [Concomitant]
     Dosage: UNK
     Route: 065
  6. COENZYME Q10 [Concomitant]
     Dosage: UNK
     Route: 065
  7. PANTOLOC                           /01263204/ [Concomitant]
     Dosage: UNK
     Route: 065
  8. VENTOLIN                           /00139501/ [Concomitant]
     Dosage: UNK
     Route: 065
  9. RANITIDINE [Concomitant]
     Dosage: UNK
     Route: 065
  10. METFORMIN [Concomitant]
     Dosage: UNK
     Route: 065
  11. CALCIUM [Concomitant]
     Dosage: UNK
     Route: 065
  12. MAGNESIUM [Concomitant]
     Dosage: UNK
     Route: 065

REACTIONS (6)
  - Blood creatine phosphokinase increased [Unknown]
  - Atrial fibrillation [Unknown]
  - Dyspnoea [Unknown]
  - Malaise [Unknown]
  - Decreased appetite [Unknown]
  - Hypoaesthesia [Unknown]
